FAERS Safety Report 6223581-4 (Version None)
Quarter: 2009Q2

REPORT INFORMATION
  Report Type: 
  Country: None (occurrence: None)
  Receive Date: 20090610
  Receipt Date: 20090528
  Transmission Date: 20091009
  Serious: Yes (Hospitalization, Other)
  Sender: FDA-Public Use
  Company Number: 230310K09BRA

PATIENT
  Age: 55 Year
  Sex: Female

DRUGS (5)
  1. REBIF [Suspect]
     Indication: RELAPSING-REMITTING MULTIPLE SCLEROSIS
     Dosage: 22 MCG, 3 IN 1 WEEKS
     Dates: start: 20030701
  2. GLIFAGE XR (METFORMIN CHLORIDE) (METFORMIN HYDROCHLORIDE) [Concomitant]
  3. LIORESAL [Concomitant]
  4. CLONAZEPAM [Concomitant]
  5. CRESTOR [Concomitant]

REACTIONS (3)
  - DIABETES MELLITUS [None]
  - INFLAMMATION [None]
  - MULTIPLE SCLEROSIS RELAPSE [None]
